FAERS Safety Report 7551561-5 (Version None)
Quarter: 2011Q2

REPORT INFORMATION
  Report Type: 
  Country: None (occurrence: None)
  Receive Date: 20110616
  Receipt Date: 20110607
  Transmission Date: 20111010
  Serious: Yes (Other)
  Sender: FDA-Public Use
  Company Number: US-NOVOPROD-329500

PATIENT
  Sex: Female
  Weight: 75.283 kg

DRUGS (3)
  1. BYETTA [Concomitant]
     Dosage: UNK
     Dates: start: 20110501, end: 20110601
  2. VICTOZA [Suspect]
     Indication: TYPE 2 DIABETES MELLITUS
     Dosage: 1.8 MG, QD
     Route: 058
     Dates: start: 20110403, end: 20110501
  3. BYETTA [Concomitant]
     Indication: TYPE 2 DIABETES MELLITUS
     Dosage: UNK
     Dates: end: 20110401

REACTIONS (1)
  - PANCREATITIS ACUTE [None]
